FAERS Safety Report 9697687 (Version 1)
Quarter: 2013Q4

REPORT INFORMATION
  Report Type: Spontaneous
  Country: US (occurrence: US)
  Receive Date: 20131120
  Receipt Date: 20131120
  Transmission Date: 20140711
  Serious: No
  Sender: FDA-Public Use
  Company Number: US-PFIZER INC-2013328324

PATIENT
  Age: 69 Year
  Sex: Female
  Weight: 102 kg

DRUGS (12)
  1. GABAPENTIN [Suspect]
     Indication: BREAST PAIN
     Dosage: UNK
     Dates: start: 2013, end: 2013
  2. GABAPENTIN [Suspect]
     Indication: HERPES ZOSTER
  3. GABAPENTIN [Suspect]
     Indication: BURNING SENSATION
  4. LYRICA [Suspect]
     Indication: BREAST PAIN
     Dosage: 75 MG, 2X/DAY
     Dates: start: 20131009
  5. LYRICA [Suspect]
     Indication: HERPES ZOSTER
     Dosage: 75MG IN MORNING AND 150MG AT NIGHT, TWO TIMES A DAY
     Dates: start: 2013
  6. LYRICA [Suspect]
     Indication: BURNING SENSATION
     Dosage: 150 MG, 2X/DAY
     Dates: start: 20131108
  7. LYRICA [Suspect]
     Dosage: UNK,2X/DAY
  8. TRAMADOL HCL [Suspect]
     Indication: BREAST PAIN
     Dosage: UNK,2X/DAY
  9. TRAMADOL HCL [Suspect]
     Indication: HERPES ZOSTER
  10. TRAMADOL HCL [Suspect]
     Indication: BURNING SENSATION
  11. HYDROCHLOROTHIAZIDE [Concomitant]
     Dosage: 25 MG, 1X/DAY
  12. LISINOPRIL [Concomitant]
     Indication: BLOOD PRESSURE ABNORMAL
     Dosage: 20 MG, 1X/DAY

REACTIONS (5)
  - Drug ineffective [Unknown]
  - Fatigue [Not Recovered/Not Resolved]
  - Oral herpes [Not Recovered/Not Resolved]
  - Lip disorder [Not Recovered/Not Resolved]
  - Dyskinesia [Not Recovered/Not Resolved]
